FAERS Safety Report 10201418 (Version 1)
Quarter: 2014Q2

REPORT INFORMATION
  Report Type: Spontaneous
  Country: US (occurrence: US)
  Receive Date: 20140528
  Receipt Date: 20140528
  Transmission Date: 20141212
  Serious: Yes (Other)
  Sender: FDA-Public Use
  Company Number: US-RB-066186-14

PATIENT
  Age: 18 Year
  Sex: Male

DRUGS (1)
  1. DELSYM [Suspect]
     Indication: DRUG ABUSE
     Route: 048
     Dates: start: 20140519

REACTIONS (4)
  - Intentional overdose [Unknown]
  - Hallucination [Unknown]
  - Drug abuse [Unknown]
  - Confusional state [Unknown]
